FAERS Safety Report 16849215 (Version 1)
Quarter: 2019Q3

REPORT INFORMATION
  Report Type: Spontaneous
  Country: US (occurrence: US)
  Receive Date: 20190802
  Receipt Date: 20190802
  Transmission Date: 20191005
  Serious: Yes (Hospitalization)
  Sender: FDA-Public Use
  Company Number: None

PATIENT
  Age: 31 Year
  Sex: Female

DRUGS (11)
  1. ASPIRIN. [Concomitant]
     Active Substance: ASPIRIN
  2. EPOETIN [Concomitant]
     Active Substance: ERYTHROPOIETIN
  3. LANSOPRAZOLE. [Concomitant]
     Active Substance: LANSOPRAZOLE
  4. HYDROMORPHONE [Suspect]
     Active Substance: HYDROMORPHONE
     Indication: PAIN
     Route: 042
     Dates: start: 20190213, end: 20190214
  5. INSULIN [Concomitant]
     Active Substance: INSULIN NOS
  6. CLOPIDOGREL [Concomitant]
     Active Substance: CLOPIDOGREL BISULFATE
  7. LOSARTAN. [Concomitant]
     Active Substance: LOSARTAN
  8. CALCIUM ACETATE. [Concomitant]
     Active Substance: CALCIUM ACETATE
  9. FUROSEMIDE. [Concomitant]
     Active Substance: FUROSEMIDE
  10. GABAPENTIN. [Concomitant]
     Active Substance: GABAPENTIN
  11. CINACALCET. [Concomitant]
     Active Substance: CINACALCET

REACTIONS (3)
  - Bradypnoea [None]
  - Respiratory arrest [None]
  - Hypoxia [None]

NARRATIVE: CASE EVENT DATE: 20190213
